FAERS Safety Report 8336342-7 (Version None)
Quarter: 2012Q2

REPORT INFORMATION
  Report Type: 
  Country: None (occurrence: None)
  Receive Date: 20120504
  Receipt Date: 20120424
  Transmission Date: 20120825
  Serious: Yes (Other)
  Sender: FDA-Public Use
  Company Number: PHHY2012FR037318

PATIENT
  Age: 50 Year
  Sex: Male

DRUGS (2)
  1. LAMISIL [Suspect]
     Indication: ONYCHOMYCOSIS
  2. LAMICTAL [Suspect]

REACTIONS (10)
  - LYMPHADENOPATHY [None]
  - RASH [None]
  - FACE OEDEMA [None]
  - CYTOLYTIC HEPATITIS [None]
  - RASH MACULO-PAPULAR [None]
  - EOSINOPHILIA [None]
  - PYREXIA [None]
  - ASTHENIA [None]
  - DRUG RASH WITH EOSINOPHILIA AND SYSTEMIC SYMPTOMS [None]
  - DRUG DISPENSING ERROR [None]
